FAERS Safety Report 16641872 (Version 1)
Quarter: 2019Q3

REPORT INFORMATION
  Report Type: Report from Study
  Country: RO (occurrence: RO)
  Receive Date: 20190729
  Receipt Date: 20190729
  Transmission Date: 20191004
  Serious: Yes (Other)
  Sender: FDA-Public Use
  Company Number: RO-PFIZER INC-2019314801

PATIENT
  Age: 85 Year
  Sex: Female
  Weight: 83 kg

DRUGS (1)
  1. TRASTUZUMAB. [Suspect]
     Active Substance: TRASTUZUMAB
     Indication: BREAST CANCER
     Dosage: 600 MG, UNK
     Route: 065
     Dates: start: 20180101

REACTIONS (1)
  - White blood cell count abnormal [Unknown]
